FAERS Safety Report 20680824 (Version 3)
Quarter: 2022Q2

REPORT INFORMATION
  Report Type: Report from Study
  Country: US (occurrence: US)
  Receive Date: 20220406
  Receipt Date: 20220620
  Transmission Date: 20220720
  Serious: Yes (Other)
  Sender: FDA-Public Use
  Company Number: US-NOVARTISPH-NVSC2022US072269

PATIENT
  Sex: Female

DRUGS (2)
  1. PIQRAY [Suspect]
     Active Substance: ALPELISIB
     Indication: Breast cancer
     Dosage: 300 MG,Q2H
     Route: 048
     Dates: start: 2021
  2. PIQRAY [Suspect]
     Active Substance: ALPELISIB
     Dosage: 300 MG, QD
     Route: 048
     Dates: start: 2021

REACTIONS (17)
  - Pneumonia [Recovering/Resolving]
  - Metastases to liver [Unknown]
  - Osteogenesis imperfecta [Unknown]
  - Cough [Unknown]
  - Hyperglycaemia [Unknown]
  - Diarrhoea [Unknown]
  - Stomatitis [Recovering/Resolving]
  - Vomiting [Unknown]
  - Rash pruritic [Recovering/Resolving]
  - Weight decreased [Unknown]
  - Immune system disorder [Unknown]
  - Rib fracture [Unknown]
  - Dyspnoea [Unknown]
  - Chest pain [Unknown]
  - Inappropriate schedule of product administration [Unknown]
  - Decreased appetite [Unknown]
  - Blood glucose abnormal [Unknown]
